FAERS Safety Report 8345901-7 (Version None)
Quarter: 2012Q2

REPORT INFORMATION
  Report Type: 
  Country: None (occurrence: None)
  Receive Date: 20120509
  Receipt Date: 20120502
  Transmission Date: 20120825
  Serious: No
  Sender: FDA-Public Use
  Company Number: US-BIOGENIDEC-2012BI015808

PATIENT
  Age: 61 Year
  Sex: Female

DRUGS (1)
  1. TYSABRI [Suspect]
     Indication: MULTIPLE SCLEROSIS
     Route: 042
     Dates: start: 20090714

REACTIONS (9)
  - FATIGUE [None]
  - PAIN [None]
  - CENTRAL NERVOUS SYSTEM LESION [None]
  - POOR VENOUS ACCESS [None]
  - CONTUSION [None]
  - ASTHENIA [None]
  - DEPRESSED MOOD [None]
  - THYROID DISORDER [None]
  - CONDITION AGGRAVATED [None]
